FAERS Safety Report 8321902-X (Version None)
Quarter: 2012Q2

REPORT INFORMATION
  Report Type: 
  Country: None (occurrence: None)
  Receive Date: 20120430
  Receipt Date: 20091123
  Transmission Date: 20120825
  Serious: No
  Sender: FDA-Public Use
  Company Number: US-TEVA-2009029239

PATIENT
  Sex: Female

DRUGS (3)
  1. EFFEXOR [Concomitant]
  2. NUVIGIL [Suspect]
     Route: 048
     Dates: start: 20091116
  3. LAMICTAL [Concomitant]

REACTIONS (1)
  - DRUG INEFFECTIVE [None]
